FAERS Safety Report 12076832 (Version 1)
Quarter: 2016Q1

REPORT INFORMATION
  Report Type: Spontaneous
  Country: US (occurrence: US)
  Receive Date: 20160215
  Receipt Date: 20160215
  Transmission Date: 20160526
  Serious: Yes (Hospitalization)
  Sender: FDA-Public Use
  Company Number: US-SUN PHARMACEUTICAL INDUSTRIES LTD-2016US-111318

PATIENT
  Age: 62 Year
  Sex: Male
  Weight: 117.9 kg

DRUGS (4)
  1. REGRANEX [Interacting]
     Active Substance: BECAPLERMIN
     Indication: SKIN ULCER
     Dosage: UNK UNK, DAILY
     Route: 061
     Dates: start: 2015, end: 20151204
  2. CIPROFLOXACIN. [Interacting]
     Active Substance: CIPROFLOXACIN
     Indication: CULTURE POSITIVE
     Dosage: UNK
     Route: 065
     Dates: start: 2015, end: 201512
  3. SULPHAMETHOXAZOLE/TRIMETHOPRIM [Interacting]
     Active Substance: SULFAMETHOXAZOLE\TRIMETHOPRIM
     Indication: CULTURE POSITIVE
     Dosage: 1 DF, BID
     Route: 048
     Dates: start: 2015, end: 201512
  4. GABAPENTIN. [Suspect]
     Active Substance: GABAPENTIN
     Indication: PRODUCT USED FOR UNKNOWN INDICATION
     Dosage: UNK
     Route: 065
     Dates: start: 2015

REACTIONS (5)
  - Muscular weakness [Recovered/Resolved]
  - Blood glucose increased [Recovered/Resolved]
  - Drug interaction [Unknown]
  - Drug effect incomplete [Recovering/Resolving]
  - Pain of skin [Recovered/Resolved]

NARRATIVE: CASE EVENT DATE: 2015
